FAERS Safety Report 14538903 (Version 3)
Quarter: 2018Q2

REPORT INFORMATION
  Report Type: Spontaneous
  Country: US (occurrence: US)
  Receive Date: 20180216
  Receipt Date: 20180518
  Transmission Date: 20180711
  Serious: No
  Sender: FDA-Public Use
  Company Number: US-PFIZER INC-2018067606

PATIENT
  Age: 61 Year
  Sex: Male
  Weight: 127 kg

DRUGS (2)
  1. LYRICA [Suspect]
     Active Substance: PREGABALIN
     Indication: NERVE COMPRESSION
  2. LYRICA [Suspect]
     Active Substance: PREGABALIN
     Indication: NEUROPATHY PERIPHERAL
     Dosage: 150 MG, 3X/DAY (150 MG CAPSULES BY MOUTH THREE TIMES A DAY)
     Route: 048
     Dates: start: 2013, end: 201802

REACTIONS (4)
  - Disturbance in attention [Unknown]
  - Blood pressure increased [Unknown]
  - Withdrawal syndrome [Not Recovered/Not Resolved]
  - Insomnia [Unknown]

NARRATIVE: CASE EVENT DATE: 20180210
